FAERS Safety Report 9079463 (Version 2)
Quarter: 2013Q1

REPORT INFORMATION
  Report Type: Report from Study
  Country: US (occurrence: US)
  Receive Date: 20130130
  Receipt Date: 20130320
  Transmission Date: 20140127
  Serious: Yes (Other)
  Sender: FDA-Public Use
  Company Number: US-US-EMD SERONO, INC.-7189597

PATIENT
  Sex: Female

DRUGS (1)
  1. REBIF [Suspect]
     Indication: MULTIPLE SCLEROSIS
     Route: 058
     Dates: start: 20120730

REACTIONS (4)
  - Cervix neoplasm [Recovering/Resolving]
  - Foetal heart rate abnormal [Recovered/Resolved]
  - Influenza like illness [Not Recovered/Not Resolved]
  - Maternal exposure timing unspecified [Recovered/Resolved]
